FAERS Safety Report 7275770-8 (Version None)
Quarter: 2011Q1

REPORT INFORMATION
  Report Type: 
  Country: None (occurrence: None)
  Receive Date: 20110204
  Receipt Date: 20110126
  Transmission Date: 20110831
  Serious: Yes (Hospitalization)
  Sender: FDA-Public Use
  Company Number: FR-MERCK-1102FRA00006

PATIENT
  Sex: Male

DRUGS (2)
  1. JANUMET [Suspect]
     Indication: TYPE 2 DIABETES MELLITUS
     Route: 048
     Dates: start: 20101001, end: 20101001
  2. TIOTROPIUM BROMIDE [Concomitant]
     Route: 065

REACTIONS (4)
  - ALANINE AMINOTRANSFERASE INCREASED [None]
  - CHEST PAIN [None]
  - GAMMA-GLUTAMYLTRANSFERASE INCREASED [None]
  - ASPARTATE AMINOTRANSFERASE INCREASED [None]
